FAERS Safety Report 17941630 (Version 1)
Quarter: 2020Q2

REPORT INFORMATION
  Report Type: Spontaneous
  Country: US (occurrence: US)
  Receive Date: 20200624
  Receipt Date: 20200624
  Transmission Date: 20200714
  Serious: No
  Sender: FDA-Public Use
  Company Number: US-PRINSTON PHARMACEUTICAL INC.-2019PRN00620

PATIENT
  Age: 64 Year
  Sex: Female
  Weight: 63.49 kg

DRUGS (7)
  1. BUPROPION HYDROCHLORIDE. [Suspect]
     Active Substance: BUPROPION HYDROCHLORIDE
     Indication: NERVOUSNESS
     Dosage: 100 MG, EVERY 48 HOURS AT 7AM
     Route: 048
     Dates: start: 20190620
  2. FISH OIL [Concomitant]
     Active Substance: FISH OIL
  3. BUPROPION HYDROCHLORIDE. [Suspect]
     Active Substance: BUPROPION HYDROCHLORIDE
     Indication: ANXIETY
     Dosage: 100 MG, 1X/DAY AROUND 7AM
     Route: 048
     Dates: start: 20190612, end: 20190620
  4. BIOTIN [Concomitant]
     Active Substance: BIOTIN
  5. B COMPLEX VITAMIN [Concomitant]
  6. FLAXSEED [Concomitant]
     Active Substance: FLAX SEED
  7. COQ10 [Concomitant]
     Active Substance: UBIDECARENONE

REACTIONS (12)
  - Impatience [Not Recovered/Not Resolved]
  - Hyperhidrosis [Not Recovered/Not Resolved]
  - Irritability [Not Recovered/Not Resolved]
  - Migraine [Not Recovered/Not Resolved]
  - Dyspnoea [Unknown]
  - Cough [Not Recovered/Not Resolved]
  - Pruritus [Not Recovered/Not Resolved]
  - Paraesthesia [Not Recovered/Not Resolved]
  - Insomnia [Not Recovered/Not Resolved]
  - Psychomotor hyperactivity [Not Recovered/Not Resolved]
  - Palpitations [Not Recovered/Not Resolved]
  - Off label use [Not Recovered/Not Resolved]

NARRATIVE: CASE EVENT DATE: 20190612
